FAERS Safety Report 4369715-8 (Version None)
Quarter: 2004Q2

REPORT INFORMATION
  Report Type: 
  Country: None (occurrence: None)
  Receive Date: 20040527
  Receipt Date: 20040517
  Transmission Date: 20050107
  Serious: Yes (Death)
  Sender: FDA-Public Use
  Company Number: 04P-167-0261098-00

PATIENT
  Age: 37 Year
  Sex: Male
  Weight: 66 kg

DRUGS (7)
  1. NORVIR [Suspect]
     Indication: HIV INFECTION
     Dosage: 100 MG, 1 IN 1 D, PER ORAL
     Route: 048
     Dates: start: 20040127, end: 20040426
  2. ATAZANAVIR SULFATE [Suspect]
     Indication: HIV INFECTION
     Dosage: 300 MG, 1 IN 1 D, PER ORAL
     Route: 048
     Dates: start: 20040127
  3. ASPIRIN [Concomitant]
  4. DAPSONE [Concomitant]
  5. PYRIMETHAMINE TAB [Concomitant]
  6. LAMIVUDINE [Concomitant]
  7. TENOFOVIR [Concomitant]

REACTIONS (1)
  - BRAIN STEM INFARCTION [None]
